FAERS Safety Report 24381172 (Version 2)
Quarter: 2024Q4

REPORT INFORMATION
  Report Type: Report from Study
  Country: US (occurrence: US)
  Receive Date: 20241001
  Receipt Date: 20241011
  Transmission Date: 20250115
  Serious: Yes (Hospitalization, Other)
  Sender: ABBVIE
  Company Number: US-ABBVIE-5937381

PATIENT
  Age: 62 Year
  Sex: Male
  Weight: 92.986 kg

DRUGS (2)
  1. CREON [Suspect]
     Active Substance: PANCRELIPASE AMYLASE\PANCRELIPASE LIPASE\PANCRELIPASE PROTEASE
     Indication: Pancreatitis
     Dosage: FORM STRENGTH: 36000 UNIT???PATIENT TAKE CREON 7 CAPSULES PER DAY, 2 CAPSULES FOR BREAKFAST 1 CAP...
     Route: 048
     Dates: start: 20161001, end: 20190201
  2. CREON [Suspect]
     Active Substance: PANCRELIPASE AMYLASE\PANCRELIPASE LIPASE\PANCRELIPASE PROTEASE
     Indication: Pancreatitis
     Dosage: FORM STRENGTH: 36000 UNIT??PATIENT TAKE CREON 7 CAPSULES PER DAY, 2 CAPSULES FOR BREAKFAST 1 CAPS...
     Route: 048
     Dates: start: 20220102

REACTIONS (6)
  - Intraductal papillary mucinous neoplasm [Recovered/Resolved]
  - Abdominal discomfort [Recovered/Resolved]
  - Post procedural complication [Unknown]
  - Hernia [Recovered/Resolved]
  - Post procedural haemorrhage [Recovered/Resolved]
  - Abdominal pain upper [Recovered/Resolved]

NARRATIVE: CASE EVENT DATE: 20181101
